FAERS Safety Report 6806771-9 (Version None)
Quarter: 2010Q2

REPORT INFORMATION
  Report Type: 
  Country: None (occurrence: None)
  Receive Date: 20100629
  Receipt Date: 20080509
  Transmission Date: 20101027
  Serious: No
  Sender: FDA-Public Use
  Company Number: US-PFIZER INC-2008030454

PATIENT
  Sex: Male
  Weight: 105.69 kg

DRUGS (1)
  1. VIAGRA [Suspect]
     Route: 048
     Dates: start: 20080101

REACTIONS (2)
  - NAUSEA [None]
  - VOMITING [None]
